FAERS Safety Report 13923558 (Version 1)
Quarter: 2017Q3

REPORT INFORMATION
  Report Type: Spontaneous
  Country: US (occurrence: US)
  Receive Date: 20170830
  Receipt Date: 20170830
  Transmission Date: 20171127
  Serious: Yes (Other)
  Sender: FDA-Public Use
  Company Number: None

PATIENT

DRUGS (1)
  1. MOXIFLOXACIN OPHTHALMIC SOLN [Suspect]
     Active Substance: MOXIFLOXACIN HYDROCHLORIDE
     Indication: CATARACT OPERATION
     Dates: start: 20170817, end: 20170817

REACTIONS (2)
  - Post procedural complication [None]
  - Eye burns [None]

NARRATIVE: CASE EVENT DATE: 20170824
